FAERS Safety Report 8194447-8 (Version None)
Quarter: 2012Q1

REPORT INFORMATION
  Report Type: 
  Country: None (occurrence: None)
  Receive Date: 20120308
  Receipt Date: 20110203
  Transmission Date: 20120608
  Serious: No
  Sender: FDA-Public Use
  Company Number: US-GLAXOSMITHKLINE-A0911654A

PATIENT
  Age: 38 Year
  Sex: Male

DRUGS (1)
  1. NICORETTE [Suspect]
     Indication: EX-TOBACCO USER
     Dates: start: 20110203, end: 20110203

REACTIONS (3)
  - THROAT IRRITATION [None]
  - DRUG ADMINISTRATION ERROR [None]
  - CHEST DISCOMFORT [None]
